FAERS Safety Report 26135023 (Version 1)
Quarter: 2025Q4

REPORT INFORMATION
  Report Type: Spontaneous
  Country: EU (occurrence: EU)
  Receive Date: 20251209
  Receipt Date: 20251209
  Transmission Date: 20260118
  Serious: Yes (Disabling)
  Sender: MYLAN
  Company Number: EU-LUNDBECK-DKLU4021703

PATIENT
  Age: 27 Year
  Sex: Male

DRUGS (24)
  1. PREGABALIN [Suspect]
     Active Substance: PREGABALIN
     Indication: Product used for unknown indication
     Dosage: 25 MILLIGRAM, QD
  2. PREGABALIN [Suspect]
     Active Substance: PREGABALIN
     Dosage: 25 MILLIGRAM, QD
     Route: 065
  3. PREGABALIN [Suspect]
     Active Substance: PREGABALIN
     Dosage: 25 MILLIGRAM, QD
     Route: 065
  4. PREGABALIN [Suspect]
     Active Substance: PREGABALIN
     Dosage: 25 MILLIGRAM, QD
  5. ESCITALOPRAM [Suspect]
     Active Substance: ESCITALOPRAM OXALATE
     Indication: Obsessive-compulsive disorder
     Dosage: 15 MILLIGRAM
  6. ESCITALOPRAM [Suspect]
     Active Substance: ESCITALOPRAM OXALATE
     Indication: Affective disorder
     Dosage: 15 MILLIGRAM
     Route: 065
  7. ESCITALOPRAM [Suspect]
     Active Substance: ESCITALOPRAM OXALATE
     Indication: Generalised anxiety disorder
     Dosage: 15 MILLIGRAM
     Route: 065
  8. ESCITALOPRAM [Suspect]
     Active Substance: ESCITALOPRAM OXALATE
     Dosage: 15 MILLIGRAM
  9. VORTIOXETINE [Suspect]
     Active Substance: VORTIOXETINE
     Indication: Obsessive-compulsive disorder
     Dosage: 5 MILLIGRAM
     Route: 065
  10. VORTIOXETINE [Suspect]
     Active Substance: VORTIOXETINE
     Indication: Affective disorder
     Dosage: 5 MILLIGRAM
  11. VORTIOXETINE [Suspect]
     Active Substance: VORTIOXETINE
     Indication: Generalised anxiety disorder
     Dosage: 5 MILLIGRAM
  12. VORTIOXETINE [Suspect]
     Active Substance: VORTIOXETINE
     Dosage: 5 MILLIGRAM
     Route: 065
  13. VORTIOXETINE [Suspect]
     Active Substance: VORTIOXETINE
     Dosage: 10 MILLIGRAM
     Route: 065
  14. VORTIOXETINE [Suspect]
     Active Substance: VORTIOXETINE
     Dosage: 10 MILLIGRAM
  15. VORTIOXETINE [Suspect]
     Active Substance: VORTIOXETINE
     Dosage: 10 MILLIGRAM
  16. VORTIOXETINE [Suspect]
     Active Substance: VORTIOXETINE
     Dosage: 10 MILLIGRAM
     Route: 065
  17. VORTIOXETINE [Suspect]
     Active Substance: VORTIOXETINE
     Dosage: 20 MILLIGRAM
  18. VORTIOXETINE [Suspect]
     Active Substance: VORTIOXETINE
     Dosage: 20 MILLIGRAM
  19. VORTIOXETINE [Suspect]
     Active Substance: VORTIOXETINE
     Dosage: 20 MILLIGRAM
     Route: 065
  20. VORTIOXETINE [Suspect]
     Active Substance: VORTIOXETINE
     Dosage: 20 MILLIGRAM
     Route: 065
  21. VORTIOXETINE [Suspect]
     Active Substance: VORTIOXETINE
     Dosage: 30 MILLIGRAM, QD (OVERDOSE:)
  22. VORTIOXETINE [Suspect]
     Active Substance: VORTIOXETINE
     Dosage: 30 MILLIGRAM, QD (OVERDOSE:)
  23. VORTIOXETINE [Suspect]
     Active Substance: VORTIOXETINE
     Dosage: 30 MILLIGRAM, QD (OVERDOSE:)
     Route: 065
  24. VORTIOXETINE [Suspect]
     Active Substance: VORTIOXETINE
     Dosage: 30 MILLIGRAM, QD (OVERDOSE:)
     Route: 065

REACTIONS (9)
  - Disability [Recovering/Resolving]
  - Obsessive-compulsive disorder [Recovering/Resolving]
  - Intrusive thoughts [Recovering/Resolving]
  - Anxiety [Recovering/Resolving]
  - Insomnia [Recovering/Resolving]
  - Emotional distress [Recovering/Resolving]
  - Therapy cessation [Recovering/Resolving]
  - Product use in unapproved indication [Unknown]
  - Prescribed overdose [Unknown]
